FAERS Safety Report 4980234-8 (Version None)
Quarter: 2006Q2

REPORT INFORMATION
  Report Type: 
  Country: None (occurrence: None)
  Receive Date: 20060424
  Receipt Date: 20060413
  Transmission Date: 20061013
  Serious: Yes (Other)
  Sender: FDA-Public Use
  Company Number: PHBS2006NL05445

PATIENT
  Age: 57 Year

DRUGS (4)
  1. CARBAMAZEPINE [Suspect]
     Indication: EPILEPSY
     Dosage: 300 MG, TID
     Route: 065
     Dates: start: 19960101
  2. EXELON [Suspect]
     Dosage: 6 MG, BID
     Route: 048
     Dates: start: 20010101, end: 20040401
  3. NATRII VALPROAS [Concomitant]
     Indication: EPILEPSY
     Dosage: 500 MG, TID
     Dates: start: 19860101
  4. MARCOUMAR [Concomitant]
     Dosage: 3 MG, QD
     Dates: start: 19870101

REACTIONS (1)
  - MYELODYSPLASTIC SYNDROME [None]
